FAERS Safety Report 20586834 (Version 3)
Quarter: 2022Q3

REPORT INFORMATION
  Report Type: Report from Study
  Country: CA (occurrence: CA)
  Receive Date: 20220314
  Receipt Date: 20220805
  Transmission Date: 20221027
  Serious: Yes (Death, Life-Threatening, Hospitalization, Congenital Anomaly, Other)
  Sender: FDA-Public Use
  Company Number: CA-AUROBINDO-AUR-APL-2022-007819

PATIENT
  Age: 2 Day

DRUGS (3)
  1. VALSARTAN [Suspect]
     Active Substance: VALSARTAN
     Indication: Hypertension
     Dosage: UNK
     Route: 064
  2. VALSARTAN [Suspect]
     Active Substance: VALSARTAN
     Indication: Acute kidney injury
  3. LASIX [Suspect]
     Active Substance: FUROSEMIDE
     Indication: Hypertension
     Dosage: UNK
     Route: 064

REACTIONS (17)
  - Hypocalvaria [Fatal]
  - Foetal exposure during pregnancy [Fatal]
  - Limb deformity [Fatal]
  - Anuria [Fatal]
  - Hypotension [Fatal]
  - Foetal malformation [Fatal]
  - Renal aplasia [Fatal]
  - Respiratory failure [Fatal]
  - Potter^s syndrome [Fatal]
  - Congenital musculoskeletal disorder of skull [Not Recovered/Not Resolved]
  - Congenital renal disorder [Not Recovered/Not Resolved]
  - Foetal disorder [Not Recovered/Not Resolved]
  - Kidney fibrosis [Not Recovered/Not Resolved]
  - Neonatal hypotension [Not Recovered/Not Resolved]
  - Neonatal respiratory failure [Not Recovered/Not Resolved]
  - Renal tubular disorder [Not Recovered/Not Resolved]
  - Renal vessel congenital anomaly [Not Recovered/Not Resolved]
